FAERS Safety Report 7261806-7 (Version None)
Quarter: 2011Q1

REPORT INFORMATION
  Report Type: 
  Country: None (occurrence: None)
  Receive Date: 20110130
  Receipt Date: 20101128
  Transmission Date: 20110831
  Serious: No
  Sender: FDA-Public Use
  Company Number: US-ABBOTT-10P-163-0688664-00

PATIENT
  Sex: Female
  Weight: 68.1 kg

DRUGS (2)
  1. HUMIRA [Suspect]
     Indication: RHEUMATOID ARTHRITIS
     Route: 058
     Dates: start: 20100701
  2. BENADRYL [Concomitant]
     Indication: PROPHYLAXIS
     Dosage: TAKE ONE TABLET A HALF HOUR BEFORE CIPROFLOXACIN.
     Dates: start: 20101119, end: 20101123

REACTIONS (7)
  - DYSURIA [None]
  - POLLAKIURIA [None]
  - NAUSEA [None]
  - URINARY TRACT INFECTION [None]
  - VULVAL OEDEMA [None]
  - FATIGUE [None]
  - DECREASED APPETITE [None]
